FAERS Safety Report 10208565 (Version 2)
Quarter: 2014Q3

REPORT INFORMATION
  Report Type: Report from Study
  Country: BE (occurrence: BE)
  Receive Date: 20140530
  Receipt Date: 20140710
  Transmission Date: 20150326
  Serious: Yes (Hospitalization)
  Sender: FDA-Public Use
  Company Number: BE-ABBVIE-14P-013-1240334-00

PATIENT
  Age: 72 Year
  Sex: Male
  Weight: 75 kg

DRUGS (17)
  1. HUMIRA [Suspect]
     Active Substance: ADALIMUMAB
     Indication: UVEITIS
     Route: 058
     Dates: start: 20130621
  2. PANTOPRAZOLE [Concomitant]
     Active Substance: PANTOPRAZOLE SODIUM
     Indication: GASTRIC DISORDER
     Route: 048
     Dates: start: 20130225
  3. METHYLPREDNISOLON [Concomitant]
     Active Substance: METHYLPREDNISOLONE
     Route: 048
     Dates: start: 20130726, end: 20130822
  4. METHYLPREDNISOLON [Concomitant]
     Active Substance: METHYLPREDNISOLONE
     Route: 048
     Dates: start: 20130913, end: 20131003
  5. CACIT D3 [Concomitant]
     Active Substance: CALCIUM\CHOLECALCIFEROL
     Indication: OSTEOPENIA
     Dosage: 1 G/880MG
     Route: 048
     Dates: start: 20090218
  6. FOLIUMACID [Concomitant]
     Indication: ADVERSE DRUG REACTION
     Route: 048
     Dates: start: 20081119
  7. METHOTREXATE [Concomitant]
     Active Substance: METHOTREXATE
     Indication: PRODUCT USED FOR UNKNOWN INDICATION
     Route: 048
     Dates: start: 20081119
  8. METHYLPREDNISOLON [Concomitant]
     Active Substance: METHYLPREDNISOLONE
     Route: 048
     Dates: start: 20131004, end: 20131024
  9. BROMOVINYLDEOXYURIDINE [Concomitant]
     Indication: VARICELLA
     Dates: start: 20140117
  10. METHYLPREDNISOLON [Concomitant]
     Active Substance: METHYLPREDNISOLONE
     Route: 048
     Dates: start: 20130705, end: 20130725
  11. METHYLPREDNISOLON [Concomitant]
     Active Substance: METHYLPREDNISOLONE
     Route: 048
     Dates: start: 20131025, end: 20140704
  12. BROMOVINYLDEOXYURIDINE [Concomitant]
     Indication: OPHTHALMIC HERPES SIMPLEX
     Dates: start: 20130307, end: 20130726
  13. BROMOVINYLDEOXYURIDINE [Concomitant]
     Indication: PROPHYLAXIS
     Dates: start: 20130727, end: 20140116
  14. METHYLPREDNISOLON [Concomitant]
     Active Substance: METHYLPREDNISOLONE
     Indication: PRODUCT USED FOR UNKNOWN INDICATION
     Route: 048
     Dates: start: 20130621, end: 20130704
  15. METHYLPREDNISOLON [Concomitant]
     Active Substance: METHYLPREDNISOLONE
     Route: 048
     Dates: start: 20130823, end: 20130912
  16. DORZOLAMIDE TIMOLOL [Concomitant]
     Active Substance: DORZOLAMIDE
     Indication: GLAUCOMA
     Route: 061
     Dates: start: 20091023
  17. PANTOPRAZOLE [Concomitant]
     Active Substance: PANTOPRAZOLE SODIUM
     Indication: PROPHYLAXIS

REACTIONS (2)
  - Pulmonary embolism [Recovered/Resolved]
  - Pyonephrosis [Not Recovered/Not Resolved]

NARRATIVE: CASE EVENT DATE: 20140520
